FAERS Safety Report 16499466 (Version 1)
Quarter: 2019Q3

REPORT INFORMATION
  Report Type: Spontaneous
  Country: BE (occurrence: BE)
  Receive Date: 20190701
  Receipt Date: 20190701
  Transmission Date: 20191004
  Serious: Yes (Other)
  Sender: FDA-Public Use
  Company Number: BE-AUROBINDO-AUR-APL-2019-023871

PATIENT

DRUGS (2)
  1. DROSPIRENONE AND ETHINYL ESTRADIOL [Suspect]
     Active Substance: DROSPIRENONE\ETHINYL ESTRADIOL
     Indication: PRODUCT USED FOR UNKNOWN INDICATION
     Dosage: 30?G, DROSPIRENONE 3MG/ETHINYLESTRADIOL 0.03MG
     Route: 048
  2. LEVONORGESTREL+ETHINYLESTRADIOL 0.15 MG/0.03 MG FILM COATED TABLETS [Suspect]
     Active Substance: ETHINYL ESTRADIOL\LEVONORGESTREL
     Indication: CONTRACEPTION
     Dosage: 0.03 MG ETHINYLESTRADIOL/ 0.15 MG LEVONORGESTREL
     Route: 048

REACTIONS (10)
  - Abdominal pain upper [Unknown]
  - Breast pain [Unknown]
  - Metrorrhagia [Unknown]
  - Emotional disorder [Unknown]
  - Inappropriate schedule of product administration [Unknown]
  - Acne [Unknown]
  - Incorrect product administration duration [Unknown]
  - Dysuria [Unknown]
  - Abdominal pain [Unknown]
  - Abdominal pain lower [Unknown]

NARRATIVE: CASE EVENT DATE: 201306
